FAERS Safety Report 7423166-8 (Version None)
Quarter: 2011Q2

REPORT INFORMATION
  Report Type: 
  Country: None (occurrence: None)
  Receive Date: 20110419
  Receipt Date: 20110411
  Transmission Date: 20111010
  Serious: Yes (Other)
  Sender: FDA-Public Use
  Company Number: US-JNJFOC-20110404769

PATIENT
  Age: 34 Year
  Sex: Female
  Weight: 70.31 kg

DRUGS (1)
  1. TYLENOL COLD MULTI-SYMPTOM DAYTIME RAPID RELEASE [Suspect]
     Indication: NASOPHARYNGITIS
     Route: 048

REACTIONS (8)
  - HEART RATE INCREASED [None]
  - HYPOTENSION [None]
  - PRODUCT QUALITY ISSUE [None]
  - THROAT TIGHTNESS [None]
  - REACTION TO DRUG EXCIPIENTS [None]
  - VOMITING [None]
  - DEHYDRATION [None]
  - TREMOR [None]
